FAERS Safety Report 5363792-3 (Version None)
Quarter: 2007Q2

REPORT INFORMATION
  Report Type: 
  Country: None (occurrence: None)
  Receive Date: 20070620
  Receipt Date: 20070608
  Transmission Date: 20071010
  Serious: Yes (Other)
  Sender: FDA-Public Use
  Company Number: US-MERCK-0706USA02598

PATIENT
  Age: 78 Year
  Sex: Female

DRUGS (7)
  1. MEVACOR [Suspect]
     Route: 048
  2. ASPIRIN [Concomitant]
     Route: 065
  3. VITAMIN E [Concomitant]
     Route: 065
  4. RILUZOLE [Concomitant]
     Route: 065
  5. ASCORBIC ACID [Concomitant]
     Route: 065
  6. CANDESARTAN [Concomitant]
     Route: 065
  7. BETA CAROTENE [Concomitant]
     Route: 065

REACTIONS (9)
  - AMYOTROPHIC LATERAL SCLEROSIS [None]
  - ARTHROPATHY [None]
  - ASTHENIA [None]
  - GAIT DISTURBANCE [None]
  - MUSCLE ATROPHY [None]
  - MYOPATHY TOXIC [None]
  - NEUROMYOPATHY [None]
  - PERONEAL NERVE PALSY [None]
  - UPPER MOTOR NEURONE LESION [None]
